FAERS Safety Report 23722703 (Version 12)
Quarter: 2024Q3

REPORT INFORMATION
  Report Type: Spontaneous
  Country: US (occurrence: US)
  Receive Date: 20240409
  Receipt Date: 20240801
  Transmission Date: 20241017
  Serious: Yes (Hospitalization, Other)
  Sender: PFIZER
  Company Number: US-PFIZER INC-PV202200124939

PATIENT
  Age: 72 Year
  Sex: Female
  Weight: 80.74 kg

DRUGS (20)
  1. XELJANZ [Suspect]
     Active Substance: TOFACITINIB CITRATE
     Indication: Psoriatic arthropathy
     Dosage: 5 MG
     Route: 048
  2. XELJANZ [Suspect]
     Active Substance: TOFACITINIB CITRATE
     Indication: Arthritis
     Dosage: 5MG, TWICE (IN MORNING AND LATE AFTERNOON OR EVENING)
     Route: 048
     Dates: start: 20210113, end: 2024
  3. XELJANZ [Suspect]
     Active Substance: TOFACITINIB CITRATE
     Indication: Rheumatoid arthritis
     Dosage: 5MG, TWICE (IN MORNING AND LATE AFTERNOON OR EVENING)
     Route: 048
     Dates: start: 2024
  4. XELJANZ [Suspect]
     Active Substance: TOFACITINIB CITRATE
     Indication: Osteoarthritis
  5. COSENTYX [Concomitant]
     Active Substance: SECUKINUMAB
     Dosage: UNK
  6. DICLOFENAC [Concomitant]
     Active Substance: DICLOFENAC
     Indication: Arthritis
     Dosage: 75 MG, 2X/DAY
     Route: 048
     Dates: start: 2021
  7. DICLOFENAC [Concomitant]
     Active Substance: DICLOFENAC
     Indication: Psoriasis
  8. LAMOTRIGINE [Concomitant]
     Active Substance: LAMOTRIGINE
     Indication: Anxiety
     Dosage: 200 MG, 1X/DAY
     Route: 048
     Dates: start: 2023
  9. OTEZLA [Concomitant]
     Active Substance: APREMILAST
     Dosage: UNK
  10. OZEMPIC [Concomitant]
     Active Substance: SEMAGLUTIDE
     Dosage: UNK
  11. LUNESTA [Concomitant]
     Active Substance: ESZOPICLONE
     Dosage: UNK
  12. LAMICTAL [Concomitant]
     Active Substance: LAMOTRIGINE
     Dosage: UNK
  13. TRIAMCINOLONE [Concomitant]
     Active Substance: TRIAMCINOLONE
     Dosage: UNK
  14. HERBALS\TURMERIC [Concomitant]
     Active Substance: HERBALS\TURMERIC
     Dosage: UNK
  15. TYLENOL [Concomitant]
     Active Substance: ACETAMINOPHEN
     Dosage: UNK
  16. ASPIRIN [Concomitant]
     Active Substance: ASPIRIN
     Dosage: UNK
  17. VITAMIN D3 [Concomitant]
     Active Substance: CHOLECALCIFEROL
     Dosage: UNK
  18. VOLTAREN [Concomitant]
     Active Substance: DICLOFENAC SODIUM
     Dosage: UNK
  19. VITRON [Concomitant]
     Dosage: UNK
  20. LEVOTHYROXINE [Concomitant]
     Active Substance: LEVOTHYROXINE\LEVOTHYROXINE SODIUM
     Dosage: UNK

REACTIONS (13)
  - Illness [Unknown]
  - Loss of consciousness [Recovered/Resolved]
  - Skin exfoliation [Not Recovered/Not Resolved]
  - Incoherent [Recovered/Resolved]
  - Hip arthroplasty [Unknown]
  - Knee arthroplasty [Unknown]
  - Nasopharyngitis [Unknown]
  - Condition aggravated [Not Recovered/Not Resolved]
  - Psoriasis [Not Recovered/Not Resolved]
  - Stress [Unknown]
  - Arthralgia [Unknown]
  - Dysphonia [Unknown]
  - Skin disorder [Unknown]
